FAERS Safety Report 7507443-8 (Version None)
Quarter: 2011Q2

REPORT INFORMATION
  Report Type: 
  Country: None (occurrence: None)
  Receive Date: 20110526
  Receipt Date: 20110512
  Transmission Date: 20111010
  Serious: Yes (Hospitalization)
  Sender: FDA-Public Use
  Company Number: PHHY2011ES41319

PATIENT
  Age: 85 Year
  Sex: Male

DRUGS (6)
  1. ENOXAPARIN SODIUM [Interacting]
     Indication: CARDIAC ABLATION
     Dosage: 120 MG, UNK
     Route: 058
     Dates: start: 20091004
  2. EMCONCOR [Concomitant]
     Indication: ARRHYTHMIA SUPRAVENTRICULAR
     Dosage: 2.5 MG, QD
     Route: 048
  3. SINTROM [Interacting]
     Indication: ARRHYTHMIA
     Dosage: UNK
     Route: 048
     Dates: start: 20090701, end: 20091003
  4. ALLOPURINOL [Suspect]
     Dosage: 300 MG, QD
     Route: 048
  5. ACETAMINOPHEN [Concomitant]
  6. PRAVASTATIN [Concomitant]
     Indication: HYPERLIPIDAEMIA
     Dosage: 20 MG, QD
     Route: 048

REACTIONS (4)
  - HAEMATOMA [None]
  - HYPERTENSION [None]
  - DRUG INTERACTION [None]
  - PROTHROMBIN TIME PROLONGED [None]
